FAERS Safety Report 8165838-6 (Version None)
Quarter: 2012Q1

REPORT INFORMATION
  Report Type: 
  Country: None (occurrence: None)
  Receive Date: 20120223
  Receipt Date: 20120223
  Transmission Date: 20120608
  Serious: Yes (Other)
  Sender: FDA-Public Use
  Company Number: None

PATIENT
  Age: 74 Year
  Sex: Female
  Weight: 53.5244 kg

DRUGS (1)
  1. CIPROFLOXACIN [Suspect]
     Indication: URINARY TRACT INFECTION
     Dosage: 1 EVERY 12HRS FOR 1 WEEK MOUTH
     Route: 048
     Dates: start: 20120131, end: 20120203

REACTIONS (5)
  - TENDON PAIN [None]
  - MYALGIA [None]
  - FEAR [None]
  - NECK PAIN [None]
  - MOVEMENT DISORDER [None]
